FAERS Safety Report 12396374 (Version 1)
Quarter: 2016Q2

REPORT INFORMATION
  Report Type: Report from Study
  Country: IT (occurrence: IT)
  Receive Date: 20160524
  Receipt Date: 20160524
  Transmission Date: 20160815
  Serious: Yes (Other)
  Sender: FDA-Public Use
  Company Number: IT-BAXTER-2016BAX026143

PATIENT

DRUGS (3)
  1. TIOTEPA [Suspect]
     Active Substance: THIOTEPA
     Indication: B-CELL LYMPHOMA
     Route: 065
  2. FLUDARABINA [Suspect]
     Active Substance: FLUDARABINE PHOSPHATE
     Indication: B-CELL LYMPHOMA
     Route: 065
  3. ENDOXAN BAXTER [Suspect]
     Active Substance: CYCLOPHOSPHAMIDE
     Indication: B-CELL LYMPHOMA
     Route: 065

REACTIONS (3)
  - Atrial fibrillation [Unknown]
  - Chronic graft versus host disease [Unknown]
  - Febrile neutropenia [Unknown]
